FAERS Safety Report 23091526 (Version 3)
Quarter: 2023Q4

REPORT INFORMATION
  Report Type: Report from Study
  Country: CA (occurrence: CA)
  Receive Date: 20231020
  Receipt Date: 20231219
  Transmission Date: 20240110
  Serious: Yes (Hospitalization, Other)
  Sender: FDA-Public Use
  Company Number: CA-GLAXOSMITHKLINE-CA2023AMR062165

PATIENT
  Age: 81 Year
  Sex: Female

DRUGS (1)
  1. AMBRISENTAN [Suspect]
     Active Substance: AMBRISENTAN
     Indication: Pulmonary arterial hypertension
     Dosage: 10 MG, QD
     Route: 065
     Dates: start: 20101222

REACTIONS (8)
  - Cerebral haemorrhage [Unknown]
  - Pulmonary hypertension [Unknown]
  - Deafness [Unknown]
  - Fall [Unknown]
  - Bone contusion [Unknown]
  - Skin laceration [Unknown]
  - Impaired healing [Unknown]
  - Malaise [Unknown]
